FAERS Safety Report 18483928 (Version 8)
Quarter: 2022Q4

REPORT INFORMATION
  Report Type: Other
  Country: JP (occurrence: JP)
  Receive Date: 20201109
  Receipt Date: 20221021
  Transmission Date: 20230112
  Serious: Yes (Hospitalization)
  Sender: FDA-Public Use
  Company Number: JP-CHUGAI-A2020048053ROCHE

PATIENT
  Age: 39 Year
  Sex: Male
  Weight: 68.4 kg

DRUGS (9)
  1. ATEZOLIZUMAB [Suspect]
     Active Substance: ATEZOLIZUMAB
     Indication: Lung adenocarcinoma
     Route: 041
     Dates: start: 20201022, end: 20201022
  2. BEVACIZUMAB [Suspect]
     Active Substance: BEVACIZUMAB
     Indication: Lung adenocarcinoma
     Route: 041
     Dates: start: 20201022, end: 20201022
  3. PACLITAXEL [Suspect]
     Active Substance: PACLITAXEL
     Indication: Lung adenocarcinoma
     Route: 041
     Dates: start: 20201022
  4. LOXOPROFEN [Suspect]
     Active Substance: LOXOPROFEN
     Indication: Arthralgia
     Dosage: DOSE INTERVAL UNCERTAINTY
     Route: 048
     Dates: start: 20201026, end: 20201030
  5. REBAMIPIDE [Suspect]
     Active Substance: REBAMIPIDE
     Indication: Prophylaxis
     Dosage: DOSE INTERVAL UNCERTAINTY
     Route: 048
     Dates: start: 20201026, end: 20201030
  6. PREGABALIN [Suspect]
     Active Substance: PREGABALIN
     Indication: Neuropathy peripheral
     Dosage: DOSE INTERVAL UNCERTAINTY
     Route: 048
     Dates: start: 20201025, end: 20201029
  7. FEBUXOSTAT [Suspect]
     Active Substance: FEBUXOSTAT
     Indication: Hyperuricaemia
     Dosage: DOSE INTERVAL UNCERTAINTY
     Route: 048
     Dates: start: 20201020, end: 20201029
  8. MAGNESIUM OXIDE [Suspect]
     Active Substance: MAGNESIUM OXIDE
     Indication: Constipation
     Dosage: DOSE INTERVAL UNCERTAINTY
     Route: 048
     Dates: start: 20201027, end: 20201030
  9. CARBOPLATIN [Concomitant]
     Active Substance: CARBOPLATIN
     Indication: Lung adenocarcinoma
     Dosage: DOSAGE: 750 WITH UNKNOWN UNIT
     Route: 041
     Dates: start: 20201022

REACTIONS (6)
  - Stevens-Johnson syndrome [Recovered/Resolved]
  - Aspartate aminotransferase increased [Not Recovered/Not Resolved]
  - Alanine aminotransferase increased [Not Recovered/Not Resolved]
  - Constipation [Unknown]
  - Neuropathy peripheral [Unknown]
  - Arthralgia [Unknown]

NARRATIVE: CASE EVENT DATE: 20201030
